FAERS Safety Report 9008976 (Version 1)
Quarter: 2013Q1

REPORT INFORMATION
  Report Type: Spontaneous
  Country: FR (occurrence: FR)
  Receive Date: 20130111
  Receipt Date: 20130111
  Transmission Date: 20140127
  Serious: Yes (Hospitalization, Other)
  Sender: FDA-Public Use
  Company Number: FR-ASTRAZENECA-2013SE00590

PATIENT
  Age: 20383 Day
  Sex: Female

DRUGS (3)
  1. ARIMIDEX [Suspect]
     Indication: BREAST CANCER
     Route: 048
     Dates: start: 20090201, end: 20120101
  2. ARIMIDEX [Suspect]
     Indication: BREAST CANCER
     Dosage: ANASTROZOLE SANDOZ, 1 DF DAILY
     Route: 048
     Dates: start: 20120101, end: 20120501
  3. FEMARA [Suspect]
     Indication: BREAST CANCER
     Route: 048
     Dates: start: 20080701, end: 20090201

REACTIONS (2)
  - Tendonitis [Not Recovered/Not Resolved]
  - Pain [Not Recovered/Not Resolved]
